FAERS Safety Report 4593470-X (Version None)
Quarter: 2005Q1

REPORT INFORMATION
  Report Type: 
  Country: None (occurrence: None)
  Receive Date: 20050224
  Receipt Date: 20040713
  Transmission Date: 20050727
  Serious: No
  Sender: FDA-Public Use
  Company Number: US-BRISTOL-MYERS SQUIBB COMPANY-12645602

PATIENT
  Age: 61 Year
  Sex: Female
  Weight: 6 kg

DRUGS (6)
  1. EXCEDRIN (MIGRAINE) [Suspect]
     Indication: HEADACHE
     Dosage: SPIT ONE OUT AFTER BURNING BEGAN.
     Dates: start: 20040712, end: 20040712
  2. PREMARIN [Concomitant]
  3. NEXIUM [Concomitant]
  4. CALCIUM GLUCONATE [Concomitant]
  5. VITAMIN E [Concomitant]
  6. VITAMIN C [Concomitant]

REACTIONS (2)
  - DYSPHONIA [None]
  - THROAT IRRITATION [None]
